FAERS Safety Report 19925500 (Version 1)
Quarter: 2021Q4

REPORT INFORMATION
  Report Type: Spontaneous
  Country: CN (occurrence: CN)
  Receive Date: 20211006
  Receipt Date: 20211006
  Transmission Date: 20220303
  Serious: Yes (Other)
  Sender: FDA-Public Use
  Company Number: CN-FRESENIUS KABI-FK202110688

PATIENT
  Age: 58 Year
  Sex: Female
  Weight: 63.6 kg

DRUGS (1)
  1. VOLUVEN [Suspect]
     Active Substance: HYDROXYETHYL STARCH 130/0.4
     Indication: Symptomatic treatment
     Dosage: FORM OF ADMIN. REPORTED AS INJECTION
     Route: 041
     Dates: start: 20210921, end: 20210921

REACTIONS (4)
  - Hypotension [Recovering/Resolving]
  - Nausea [Recovering/Resolving]
  - Headache [Recovering/Resolving]
  - Dizziness [Recovering/Resolving]

NARRATIVE: CASE EVENT DATE: 20210921
